FAERS Safety Report 21571641 (Version 2)
Quarter: 2022Q4

REPORT INFORMATION
  Report Type: Spontaneous
  Country: ID (occurrence: ID)
  Receive Date: 20221109
  Receipt Date: 20221117
  Transmission Date: 20230113
  Serious: Yes (Hospitalization, Other)
  Sender: FDA-Public Use
  Company Number: ID-BoehringerIngelheim-2022-BI-196531

PATIENT
  Age: 43 Year
  Sex: Female
  Weight: 66 kg

DRUGS (3)
  1. LINAGLIPTIN [Suspect]
     Active Substance: LINAGLIPTIN
     Indication: Product used for unknown indication
  2. JARDIANCE [Suspect]
     Active Substance: EMPAGLIFLOZIN
     Indication: Product used for unknown indication
  3. PREMIX INSULIN LISPRO 25/75 [Concomitant]
     Indication: Product used for unknown indication
     Dates: start: 202210

REACTIONS (14)
  - Pain in extremity [Unknown]
  - Gait inability [Unknown]
  - Blood glucose increased [Not Recovered/Not Resolved]
  - Musculoskeletal stiffness [Not Recovered/Not Resolved]
  - Cyst [Unknown]
  - Nausea [Unknown]
  - Vomiting [Unknown]
  - Chills [Unknown]
  - Pollakiuria [Unknown]
  - Dry mouth [Unknown]
  - Thirst [Unknown]
  - Abdominal distension [Unknown]
  - Dysgeusia [Unknown]
  - Nausea [Recovering/Resolving]

NARRATIVE: CASE EVENT DATE: 20221001
